FAERS Safety Report 13203774 (Version 1)
Quarter: 2017Q1

REPORT INFORMATION
  Report Type: Spontaneous
  Country: US (occurrence: US)
  Receive Date: 20170209
  Receipt Date: 20170209
  Transmission Date: 20170428
  Serious: Yes (Death, Other)
  Sender: FDA-Public Use
  Company Number: US-JAZZ-2017-US-001670

PATIENT
  Age: 29 Year
  Sex: Male
  Weight: 81.63 kg

DRUGS (7)
  1. CLOZAPINE. [Suspect]
     Active Substance: CLOZAPINE
     Indication: MANIA
     Dosage: 300 MG, QD
     Route: 048
  2. CLONAZEPAM. [Concomitant]
     Active Substance: CLONAZEPAM
     Indication: AGORAPHOBIA
  3. VENLAFAXINE [Concomitant]
     Active Substance: VENLAFAXINE HYDROCHLORIDE
     Indication: PANIC DISORDER
  4. CLONAZEPAM. [Concomitant]
     Active Substance: CLONAZEPAM
     Indication: PANIC DISORDER
  5. VENLAFAXINE [Concomitant]
     Active Substance: VENLAFAXINE HYDROCHLORIDE
     Indication: SCHIZOAFFECTIVE DISORDER
     Dosage: 225 MG, UNK
  6. CLONAZEPAM. [Concomitant]
     Active Substance: CLONAZEPAM
     Indication: SCHIZOAFFECTIVE DISORDER
     Dosage: 1 MG, QD
  7. VENLAFAXINE [Concomitant]
     Active Substance: VENLAFAXINE HYDROCHLORIDE
     Indication: AGORAPHOBIA

REACTIONS (3)
  - Chest pain [Unknown]
  - Pulmonary embolism [Fatal]
  - Supraventricular tachycardia [Recovered/Resolved]
